FAERS Safety Report 24338605 (Version 1)
Quarter: 2024Q3

REPORT INFORMATION
  Report Type: Spontaneous
  Country: US (occurrence: US)
  Receive Date: 20240919
  Receipt Date: 20240919
  Transmission Date: 20241017
  Serious: Yes (Other)
  Sender: NOVARTIS
  Company Number: US-002147023-NVSC2024US185747

PATIENT
  Age: 70 Year
  Sex: Female
  Weight: 100.23 kg

DRUGS (1)
  1. COSENTYX [Suspect]
     Active Substance: SECUKINUMAB
     Indication: Product used for unknown indication
     Dosage: UNK (300MG/2ML, OTHER)
     Route: 058
     Dates: start: 20240604

REACTIONS (1)
  - Thrombosis [Recovered/Resolved]
